FAERS Safety Report 11422313 (Version 1)
Quarter: 2015Q3

REPORT INFORMATION
  Report Type: Spontaneous
  Country: US (occurrence: None)
  Receive Date: 20150826
  Receipt Date: 20150826
  Transmission Date: 20151125
  Serious: Yes (Hospitalization)
  Sender: FDA-Public Use
  Company Number: None

PATIENT
  Age: 10 Year
  Sex: Male
  Weight: 35 kg

DRUGS (4)
  1. DEXAMETHASONE. [Suspect]
     Active Substance: DEXAMETHASONE
     Dates: end: 20150821
  2. DAUNORUBICIN [Suspect]
     Active Substance: DAUNORUBICIN
     Dates: end: 20150818
  3. VINCRISTINE SULFATE. [Suspect]
     Active Substance: VINCRISTINE SULFATE
     Dates: end: 20150818
  4. CYTARABINE. [Suspect]
     Active Substance: CYTARABINE
     Dates: end: 20150818

REACTIONS (7)
  - Renal failure [None]
  - Pneumonia [None]
  - Tumour lysis syndrome [None]
  - Dialysis [None]
  - Mouth haemorrhage [None]
  - Atelectasis [None]
  - Epistaxis [None]

NARRATIVE: CASE EVENT DATE: 20150820
